FAERS Safety Report 10733536 (Version 1)
Quarter: 2015Q1

REPORT INFORMATION
  Report Type: Spontaneous
  Country: FR (occurrence: FR)
  Receive Date: 20150123
  Receipt Date: 20150123
  Transmission Date: 20150721
  Serious: Yes (Hospitalization)
  Sender: FDA-Public Use
  Company Number: FR-AMGEN-FRASP2015004069

PATIENT
  Age: 75 Year
  Sex: Male

DRUGS (14)
  1. GALVUS [Concomitant]
     Active Substance: VILDAGLIPTIN
     Indication: TYPE 2 DIABETES MELLITUS
     Dosage: UNK
     Route: 048
     Dates: start: 20130117, end: 20131220
  2. OMACOR [Concomitant]
     Active Substance: OMEGA-3-ACID ETHYL ESTERS
     Dosage: UNK UNK, QD
     Route: 048
  3. MECIR [Concomitant]
     Active Substance: TAMSULOSIN HYDROCHLORIDE
     Dosage: UNK
  4. RENVELA [Concomitant]
     Active Substance: SEVELAMER CARBONATE
     Dosage: UNK UNK, BID
     Dates: start: 20130920
  5. ARANESP [Suspect]
     Active Substance: DARBEPOETIN ALFA
     Indication: CHRONIC KIDNEY DISEASE
     Dosage: 30 MUG, Q2MO
     Route: 058
     Dates: start: 20121012
  6. UVEDOSE [Concomitant]
     Active Substance: CHOLECALCIFEROL
     Indication: CHRONIC KIDNEY DISEASE
     Dosage: 100000 UNK, UNK
     Route: 048
     Dates: start: 20121012, end: 201312
  7. ALLOPURINOL. [Concomitant]
     Active Substance: ALLOPURINOL
     Dosage: 100 MG, QD
     Route: 048
     Dates: start: 200612
  8. GABAPENTINE ARROW [Concomitant]
     Active Substance: GABAPENTIN
     Dosage: 1 DF, QD, 800 MG
     Route: 048
  9. FUROSEMIDE. [Concomitant]
     Active Substance: FUROSEMIDE
     Dosage: 60 MG, QD
     Route: 048
  10. UN ALFA [Concomitant]
     Indication: CHRONIC KIDNEY DISEASE
     Dosage: 0.25 MUG, QD
     Route: 048
     Dates: start: 20130503
  11. SIMVASTATINE [Concomitant]
     Active Substance: SIMVASTATIN
     Dosage: 40 MG, QD
     Route: 048
  12. KARDEGIC [Concomitant]
     Active Substance: ASPIRIN LYSINE
     Dosage: 1 DF, QD, 160 MG POWDER
     Route: 048
     Dates: end: 20131220
  13. RAMIPRIL. [Concomitant]
     Active Substance: RAMIPRIL
     Dosage: 5 MG, QD
     Dates: start: 200612
  14. ZANIDIP [Concomitant]
     Active Substance: LERCANIDIPINE HYDROCHLORIDE
     Dosage: 20 MG, QD
     Route: 048

REACTIONS (1)
  - Pemphigoid [Recovered/Resolved with Sequelae]

NARRATIVE: CASE EVENT DATE: 201311
